FAERS Safety Report 4564927-2 (Version None)
Quarter: 2005Q1

REPORT INFORMATION
  Report Type: 
  Country: None (occurrence: None)
  Receive Date: 20050131
  Receipt Date: 20050119
  Transmission Date: 20050727
  Serious: Yes (Other)
  Sender: FDA-Public Use
  Company Number: US-JNJFOC-20050105269

PATIENT
  Sex: Male
  Weight: 97.52 kg

DRUGS (20)
  1. INFLIXIMAB [Suspect]
     Route: 042
  2. INFLIXIMAB [Suspect]
     Route: 042
  3. INFLIXIMAB [Suspect]
     Route: 042
  4. INFLIXIMAB [Suspect]
     Route: 042
  5. INFLIXIMAB [Suspect]
     Route: 042
  6. INFLIXIMAB [Suspect]
     Route: 042
  7. INFLIXIMAB [Suspect]
     Route: 042
  8. INFLIXIMAB [Suspect]
     Route: 042
  9. INFLIXIMAB [Suspect]
     Route: 042
  10. INFLIXIMAB [Suspect]
     Route: 042
  11. INFLIXIMAB [Suspect]
     Route: 042
  12. INFLIXIMAB [Suspect]
     Route: 042
  13. INFLIXIMAB [Suspect]
     Route: 042
  14. INFLIXIMAB [Suspect]
     Route: 042
  15. INFLIXIMAB [Suspect]
     Indication: CROHN'S DISEASE
     Route: 042
  16. MERCAPTOPURINE [Concomitant]
     Indication: CROHN'S DISEASE
  17. NARCOTIC ANALGESICS [Concomitant]
     Indication: CROHN'S DISEASE
  18. ANTIDEPRESSANTS [Concomitant]
     Indication: CROHN'S DISEASE
  19. ANTI-HISTAMINE TAB [Concomitant]
     Indication: PREMEDICATION
  20. ACETAMINOPHEN [Concomitant]
     Indication: PREMEDICATION

REACTIONS (1)
  - PROSTATE CANCER [None]
